FAERS Safety Report 8818266 (Version 1)
Quarter: 2012Q4

REPORT INFORMATION
  Report Type: 
  Country: US (occurrence: US)
  Receive Date: 20121001
  Receipt Date: 20121001
  Transmission Date: 20130627
  Serious: Yes (Hospitalization)
  Sender: FDA-Public Use
  Company Number: US-GLAXOSMITHKLINE-A0981857A

PATIENT
  Age: 57 Year
  Sex: Female
  Weight: 51.76 kg

DRUGS (13)
  1. BENLYSTA [Suspect]
     Indication: SYSTEMIC LUPUS ERYTHEMATOSUS
     Route: 042
     Dates: start: 20110513
  2. COLCRYS [Concomitant]
  3. PREDNISONE [Concomitant]
     Dosage: 15MG Per day
  4. FUROSEMIDE [Concomitant]
     Dosage: 80MG Per day
  5. ATENOLOL [Concomitant]
     Dosage: 50MG Per day
  6. LISINOPRIL [Concomitant]
     Dosage: 2.5MG Per day
  7. PRAVACHOL [Concomitant]
     Dosage: 60MG Per day
  8. COUMADIN [Concomitant]
  9. MAGNESIUM [Concomitant]
  10. MULTIVITAMIN [Concomitant]
  11. CALCIUM [Concomitant]
  12. VICODIN [Concomitant]
  13. AMBIEN [Concomitant]

REACTIONS (8)
  - Diverticulitis [Recovering/Resolving]
  - Abdominal pain upper [Recovered/Resolved]
  - Abdominal pain [Recovered/Resolved]
  - Pyrexia [Recovered/Resolved]
  - Therapeutic response unexpected [Unknown]
  - Abdominal pain lower [Recovered/Resolved]
  - Chills [Recovered/Resolved]
  - Diarrhoea [Recovered/Resolved]
